FAERS Safety Report 8880872 (Version 1)
Quarter: 2012Q4

REPORT INFORMATION
  Report Type: 
  Country: DE (occurrence: DE)
  Receive Date: 20121101
  Receipt Date: 20121101
  Transmission Date: 20130627
  Serious: No
  Sender: FDA-Public Use
  Company Number: DE-ELI_LILLY_AND_COMPANY-DE201210006275

PATIENT
  Age: 73 Year
  Sex: Male

DRUGS (1)
  1. CYMBALTA [Suspect]

REACTIONS (9)
  - Hepatic enzyme increased [Unknown]
  - Sleep disorder [Unknown]
  - Tinnitus [Unknown]
  - Dyspepsia [Unknown]
  - Dysphonia [Unknown]
  - Gastrointestinal disorder [Unknown]
  - Night sweats [Unknown]
  - Pollakiuria [Unknown]
  - Constipation [Unknown]
